FAERS Safety Report 4735641-5 (Version None)
Quarter: 2005Q3

REPORT INFORMATION
  Report Type: 
  Country: None (occurrence: None)
  Receive Date: 20050805
  Receipt Date: 20050726
  Transmission Date: 20060218
  Serious: Yes (Hospitalization)
  Sender: FDA-Public Use
  Company Number: AU-GLAXOSMITHKLINE-B0388889A

PATIENT
  Age: 43 Year
  Sex: Male
  Weight: 41 kg

DRUGS (1)
  1. AVANDIA [Suspect]
     Indication: DIABETES MELLITUS NON-INSULIN-DEPENDENT
     Dosage: 4MG PER DAY
     Route: 048
     Dates: start: 20041203, end: 20050708

REACTIONS (6)
  - FLUID OVERLOAD [None]
  - HYPONATRAEMIA [None]
  - LEGIONELLA INFECTION [None]
  - MALAISE [None]
  - PYREXIA [None]
  - VENOUS PRESSURE JUGULAR INCREASED [None]
